FAERS Safety Report 5838380-2 (Version None)
Quarter: 2008Q3

REPORT INFORMATION
  Report Type: 
  Country: None (occurrence: None)
  Receive Date: 20080808
  Receipt Date: 20080728
  Transmission Date: 20090109
  Serious: Yes (Death, Hospitalization)
  Sender: FDA-Public Use
  Company Number: GB-AMGEN-UK265805

PATIENT
  Sex: Female

DRUGS (27)
  1. MIMPARA [Suspect]
     Indication: HYPERPARATHYROIDISM SECONDARY
     Route: 048
     Dates: start: 20071207, end: 20080204
  2. CINACALCET - BLINDED [Suspect]
     Indication: HYPERPARATHYROIDISM SECONDARY
     Route: 048
     Dates: start: 20070618, end: 20071115
  3. BALNEUM [Concomitant]
  4. CABERGOLINE [Concomitant]
  5. CHLORPHENIRAMINE MALEATE [Concomitant]
  6. CLONAZEPAM [Concomitant]
  7. CO-CODAMOL [Concomitant]
  8. DIFFLAM [Concomitant]
  9. E45 [Concomitant]
  10. EMLA [Concomitant]
  11. ALUMINUM HYDROXIDE GEL [Concomitant]
  12. AMLODIPINE [Concomitant]
  13. ASPIRIN [Concomitant]
  14. TRAMADOL HCL [Concomitant]
  15. SENNA [Concomitant]
  16. SIMVASTATIN [Concomitant]
  17. ORUVAIL [Concomitant]
  18. QUININE SULFATE [Concomitant]
  19. RENAGEL [Concomitant]
  20. FOLIC ACID [Concomitant]
  21. GABAPENTIN [Concomitant]
  22. GLICLAZIDE [Concomitant]
  23. HYDROXOCOBALAMIN [Concomitant]
  24. LISINOPRIL [Concomitant]
  25. BENZOCAINE [Concomitant]
     Route: 048
  26. FRAGMIN [Concomitant]
     Route: 065
  27. OMEPRAZOLE [Concomitant]
     Route: 065

REACTIONS (1)
  - PULMONARY EMBOLISM [None]
